FAERS Safety Report 8311405-0 (Version None)
Quarter: 2012Q2

REPORT INFORMATION
  Report Type: 
  Country: None (occurrence: None)
  Receive Date: 20120425
  Receipt Date: 20111103
  Transmission Date: 20120825
  Serious: No
  Sender: FDA-Public Use
  Company Number: US-MYLANLABS-2011S1022877

PATIENT
  Age: 92 Year
  Sex: Female

DRUGS (1)
  1. IPRATROPIUM BROMIDE AND ALBUTEROL SULFATE [Suspect]
     Indication: ASTHMA
     Route: 055
     Dates: start: 20110101

REACTIONS (2)
  - EPIGASTRIC DISCOMFORT [None]
  - NAUSEA [None]
